FAERS Safety Report 17417360 (Version 1)
Quarter: 2020Q1

REPORT INFORMATION
  Report Type: Spontaneous
  Country: JO (occurrence: JO)
  Receive Date: 20200214
  Receipt Date: 20200214
  Transmission Date: 20200409
  Serious: Yes (Hospitalization, Disabling)
  Sender: FDA-Public Use
  Company Number: JO-HIKMA PHARMACEUTICALS USA INC.-JO-H14001-20-00594

PATIENT
  Sex: Male

DRUGS (1)
  1. NOREPINEPHRINE HIKMA [Suspect]
     Active Substance: NOREPINEPHRINE
     Indication: PRODUCT USED FOR UNKNOWN INDICATION
     Route: 065

REACTIONS (2)
  - Peripheral ischaemia [Recovered/Resolved with Sequelae]
  - Arm amputation [Unknown]
